FAERS Safety Report 5498314-X (Version None)
Quarter: 2007Q4

REPORT INFORMATION
  Report Type: 
  Country: None (occurrence: None)
  Receive Date: 20071025
  Receipt Date: 20070629
  Transmission Date: 20080405
  Serious: Yes (Disabling, Other)
  Sender: FDA-Public Use
  Company Number: A0649253A

PATIENT
  Age: 58 Year
  Sex: Male

DRUGS (6)
  1. ADVAIR DISKUS 100/50 [Suspect]
     Indication: ASTHMA
     Route: 055
  2. SINGULAIR [Concomitant]
     Dosage: 1TAB PER DAY
     Route: 048
     Dates: start: 20060901
  3. ALBUTEROL [Concomitant]
     Dosage: 2PUFF AS REQUIRED
     Route: 055
     Dates: start: 20060907, end: 20060908
  4. FLONASE [Concomitant]
     Dosage: 2PUFF TWICE PER DAY
     Route: 045
     Dates: start: 20030501
  5. VERAPAMIL [Concomitant]
     Dosage: 1TAB PER DAY
     Route: 048
     Dates: start: 19951001
  6. DIGOXIN [Concomitant]
     Dosage: 1TAB PER DAY
     Route: 048
     Dates: start: 19951001

REACTIONS (3)
  - DRUG INEFFECTIVE [None]
  - DYSPNOEA [None]
  - PHARMACEUTICAL PRODUCT COMPLAINT [None]
